FAERS Safety Report 16578369 (Version 1)
Quarter: 2019Q3

REPORT INFORMATION
  Report Type: Report from Study
  Country: US (occurrence: US)
  Receive Date: 20190716
  Receipt Date: 20190716
  Transmission Date: 20191004
  Serious: No
  Sender: FDA-Public Use
  Company Number: US-VANDA PHARMACEUTICALS, INC-2019TASUS002841

PATIENT
  Sex: Male

DRUGS (4)
  1. HETLIOZ [Suspect]
     Active Substance: TASIMELTEON
     Indication: NON-24-HOUR SLEEP-WAKE DISORDER
     Dosage: 20 MG, UNK
     Route: 048
  2. METOPROLOL. [Interacting]
     Active Substance: METOPROLOL
     Dosage: 25 MG, UNK
  3. METOPROLOL. [Interacting]
     Active Substance: METOPROLOL
     Dosage: 50 UNK, UNK
  4. METOPROLOL. [Interacting]
     Active Substance: METOPROLOL
     Indication: HEART RATE IRREGULAR
     Dosage: 75 MG, UNK

REACTIONS (1)
  - Drug interaction [Unknown]
